FAERS Safety Report 16976800 (Version 3)
Quarter: 2020Q1

REPORT INFORMATION
  Report Type: Report from Study
  Country: NL (occurrence: NL)
  Receive Date: 20191030
  Receipt Date: 20200227
  Transmission Date: 20200409
  Serious: Yes (Other)
  Sender: FDA-Public Use
  Company Number: PHHY2015NL005636

PATIENT
  Age: 52 Year
  Sex: Female

DRUGS (1)
  1. GILENYA [Suspect]
     Active Substance: FINGOLIMOD HYDROCHLORIDE
     Indication: MULTIPLE SCLEROSIS
     Dosage: UNK, QD
     Route: 048
     Dates: start: 20131210, end: 20140314

REACTIONS (7)
  - Lymphangitis [Recovered/Resolved]
  - Oral herpes [Unknown]
  - Fall [Recovered/Resolved]
  - Hypertension [Unknown]
  - White blood cell count decreased [Unknown]
  - Urinary tract infection [Recovered/Resolved]
  - Limb injury [Recovered/Resolved]

NARRATIVE: CASE EVENT DATE: 20150316
